FAERS Safety Report 4880445-6 (Version None)
Quarter: 2005Q4

REPORT INFORMATION
  Report Type: 
  Country: None (occurrence: None)
  Receive Date: 20051223
  Receipt Date: 20051129
  Transmission Date: 20060501
  Serious: No
  Sender: FDA-Public Use
  Company Number: 05P-163-0318184-00

PATIENT
  Age: 45 Year
  Sex: Female
  Weight: 49.8957 kg

DRUGS (6)
  1. HUMIRA [Suspect]
     Indication: RHEUMATOID ARTHRITIS
     Dosage: 40 MG, 1 IN 2 WK, SUBCUTANEOUS
     Route: 058
     Dates: start: 20040101, end: 20050601
  2. CELECOXIB [Concomitant]
  3. PREDNISONE [Concomitant]
  4. LANSOPRAZOLE [Concomitant]
  5. LISINOPRIL [Concomitant]
  6. ALPRAZOLAM [Concomitant]

REACTIONS (1)
  - SKIN ULCER [None]
